FAERS Safety Report 22657777 (Version 1)
Quarter: 2023Q2

REPORT INFORMATION
  Report Type: Spontaneous
  Country: IT (occurrence: IT)
  Receive Date: 20230630
  Receipt Date: 20230630
  Transmission Date: 20230722
  Serious: Yes (Hospitalization)
  Sender: FDA-Public Use
  Company Number: IT-AUROBINDO-AUR-APL-2023-044877

PATIENT
  Age: 20 Year
  Sex: Female

DRUGS (4)
  1. ACETAMINOPHEN [Suspect]
     Active Substance: ACETAMINOPHEN
     Indication: Pyrexia
     Dosage: 1 GRAM(FOR FIVE DAYS)
     Route: 065
  2. COTRIMOXAZOLE [Concomitant]
     Active Substance: SULFAMETHOXAZOLE\TRIMETHOPRIM
     Indication: Product used for unknown indication
     Dosage: UNK
     Route: 065
  3. MEFLOQUINE [Concomitant]
     Active Substance: MEFLOQUINE
     Indication: Plasmodium falciparum infection
     Dosage: 750 MILLIGRAM(INITIAL DOSE)
     Route: 048
  4. MEFLOQUINE [Concomitant]
     Active Substance: MEFLOQUINE
     Dosage: 500 MILLIGRAM(6 TO 12 HOURS AFTER THE INITIAL DOSE)
     Route: 048

REACTIONS (1)
  - Drug ineffective [Unknown]
